FAERS Safety Report 7315472-2 (Version None)
Quarter: 2011Q1

REPORT INFORMATION
  Report Type: 
  Country: None (occurrence: None)
  Receive Date: 20110225
  Receipt Date: 20110222
  Transmission Date: 20110831
  Serious: Yes (Death, Hospitalization)
  Sender: FDA-Public Use
  Company Number: CH-PFIZER INC-2011038184

PATIENT
  Age: 90 Year
  Sex: Female
  Weight: 79 kg

DRUGS (17)
  1. PREDNISONE [Interacting]
     Indication: HYPERCALCAEMIA
     Dosage: 80 MG, 1X/DAY
     Route: 048
     Dates: start: 20101228, end: 20110110
  2. NEXIUM [Concomitant]
     Indication: HYPERCALCAEMIA
     Dosage: 20 MG, 1X/DAY
     Route: 048
     Dates: start: 20101228, end: 20110113
  3. INDAPAMIDE [Concomitant]
     Dosage: 2.5 MG, 1X/DAY
     Route: 048
     Dates: end: 20101201
  4. AURORIX [Interacting]
     Indication: DEPRESSION
     Dosage: UNK
     Route: 048
     Dates: start: 20100101, end: 20101201
  5. MIACALCIN [Concomitant]
     Dosage: 200 IU, 1X/DAY
     Route: 045
     Dates: start: 20101219
  6. SINTROM [Interacting]
     Indication: DEEP VEIN THROMBOSIS
     Dosage: 1 MG, AS NEEDED
     Dates: start: 20100301, end: 20101201
  7. CITALOPRAM HYDROBROMIDE [Interacting]
     Dosage: 10 MG, 1X/DAY
     Route: 048
     Dates: start: 20101215, end: 20110117
  8. NEXIUM [Concomitant]
     Indication: HYPERCALCAEMIA
     Dosage: UNK
     Route: 042
     Dates: start: 20110114
  9. TAZOBAC [Suspect]
     Dosage: 4.5 G
     Route: 041
     Dates: start: 20110109, end: 20110116
  10. DIFLUCAN [Interacting]
     Dosage: 200 MG, 1X/DAY
     Route: 048
     Dates: start: 20110111, end: 20110115
  11. SINTROM [Interacting]
     Dosage: 1 MG, AS NEEDED
     Dates: start: 20110101, end: 20110111
  12. ADALAT CC [Concomitant]
     Dosage: 20 MG, 1X/DAY
     Route: 048
     Dates: start: 20101226, end: 20110109
  13. PASPERTIN [Concomitant]
     Dosage: 5 MG, 3X/DAY
     Route: 040
     Dates: start: 20101217
  14. CALCIPARINE [Interacting]
     Dosage: 5000 IU, 3X/DAY
     Route: 058
     Dates: start: 20101209, end: 20110105
  15. TOREM [Concomitant]
     Dosage: 10 MG, 1X/DAY
     Route: 048
     Dates: start: 20101201
  16. NYSTATIN [Concomitant]
     Dosage: 1 ML, 4X/DAY
     Route: 048
     Dates: end: 20110117
  17. AURORIX [Interacting]
     Indication: ABNORMAL BEHAVIOUR

REACTIONS (6)
  - MELAENA [None]
  - INJECTION SITE HAEMORRHAGE [None]
  - HAEMORRHAGIC ANAEMIA [None]
  - DRUG INTERACTION [None]
  - RETROPERITONEAL HAEMORRHAGE [None]
  - THROMBOCYTOPENIA [None]
